FAERS Safety Report 15102896 (Version 7)
Quarter: 2019Q3

REPORT INFORMATION
  Report Type: Spontaneous
  Country: US (occurrence: US)
  Receive Date: 20180703
  Receipt Date: 20190822
  Transmission Date: 20191004
  Serious: Yes (Hospitalization)
  Sender: FDA-Public Use
  Company Number: US-SA-2018SA177984

PATIENT
  Age: 50 Year
  Sex: Female
  Weight: 66.22 kg

DRUGS (40)
  1. NORMAL SALINE [Concomitant]
     Active Substance: SODIUM CHLORIDE
     Dosage: 0.9 %, UNK
     Route: 042
     Dates: start: 20190727
  2. SODIUM CHLORIDE. [Concomitant]
     Active Substance: SODIUM CHLORIDE
     Indication: FLUSHING
     Dosage: 0.9 %
     Route: 042
     Dates: start: 20180601
  3. STERILE WATER [Concomitant]
     Active Substance: WATER
     Dosage: 1 DF
     Route: 042
     Dates: start: 20180601
  4. VITAMIN D3 [Concomitant]
     Active Substance: CHOLECALCIFEROL
     Dosage: 1 CAPSULE, QD
     Route: 048
     Dates: start: 20190710
  5. VENTOLINE [SALBUTAMOL] [Concomitant]
     Active Substance: ALBUTEROL SULFATE
     Dosage: 1 PUFF
     Route: 055
     Dates: start: 20180412
  6. EPINEPHRINE. [Concomitant]
     Active Substance: EPINEPHRINE
     Dosage: 0.3 MG, PRN
     Route: 030
     Dates: start: 20190727
  7. ESTROGEL [Concomitant]
     Active Substance: ESTRADIOL
     Dosage: 1 DF, QD
     Route: 061
     Dates: start: 20180208
  8. PROCARDIA [Concomitant]
     Active Substance: NIFEDIPINE
     Dosage: 1 CAPSULE QD
     Route: 048
     Dates: start: 20180724
  9. FABRAZYME [Suspect]
     Active Substance: AGALSIDASE BETA
     Indication: LIPIDOSIS
     Dosage: 65 MG, QOW
     Route: 041
     Dates: start: 20070327
  10. NORMAL SALINE [Concomitant]
     Active Substance: SODIUM CHLORIDE
     Indication: FLUSHING
     Dosage: 0.9 %
     Route: 042
     Dates: start: 20180601
  11. STERILE WATER [Concomitant]
     Active Substance: WATER
     Dosage: 13 ML, UNK
     Route: 042
     Dates: start: 20190727
  12. ESTROGEL [Concomitant]
     Active Substance: ESTRADIOL
     Dosage: 1 DOSE QD
     Route: 061
     Dates: start: 20181127
  13. MACROBID [Concomitant]
     Active Substance: NITROFURANTOIN\NITROFURANTOIN MONOHYDRATE
     Dosage: 1 CAPSULE PRN
     Route: 048
     Dates: start: 20180113
  14. DULCOLAX (BISACODYL) [Concomitant]
     Active Substance: BISACODYL
     Dosage: 10 MG SUSPENSION QD
     Route: 054
     Dates: start: 20170222
  15. ZOFRAN [Concomitant]
     Active Substance: ONDANSETRON HYDROCHLORIDE
     Dosage: 1 TAB PRN
     Route: 060
     Dates: start: 20180621
  16. CALCITRIOL. [Concomitant]
     Active Substance: CALCITRIOL
     Dosage: 1 CAPSULE QD
     Route: 048
     Dates: start: 20190723
  17. LEFLUNOMIDE. [Suspect]
     Active Substance: LEFLUNOMIDE
     Dosage: 1 DF, BID
     Route: 048
     Dates: start: 20180526
  18. LIDOCAINE/PRILOCAINE [Concomitant]
     Active Substance: LIDOCAINE\PRILOCAINE
     Indication: PREMEDICATION
     Dosage: 2.5 %
     Route: 061
     Dates: start: 20180601
  19. MAGNESIUM [Concomitant]
     Active Substance: MAGNESIUM
     Dosage: 400 MG, QD
     Route: 048
     Dates: start: 20190710
  20. FLUBLOK [Concomitant]
     Active Substance: INFLUENZA A VIRUS A/CALIFORNIA/7/2009 (H1N1) RECOMBINANT HEMAGGLUTININ ANTIGEN\INFLUENZA A VIRUS A/VICTORIA/361/2011 (H3N2) RECOMBINANT HEMAGGLUTININ ANTIGEN\INFLUENZA B VIRUS B/WISCONSIN/1/2010 RECOMBINANT HEMAGGLUTININ ANTIGEN
     Dosage: 135 UG/0.5 VIAL
     Route: 030
     Dates: start: 20180129
  21. BACLOFEN. [Concomitant]
     Active Substance: BACLOFEN
     Dosage: 1 TAB Q8H PRN
     Route: 048
     Dates: start: 20160910
  22. FUROSEMIDE. [Concomitant]
     Active Substance: FUROSEMIDE
     Dosage: 1 TAB QD
     Route: 048
     Dates: start: 20190128
  23. HEPARIN [Concomitant]
     Active Substance: HEPARIN SODIUM
     Dosage: 100 U/ML
     Route: 042
     Dates: start: 20190727
  24. TACROLIMUS. [Concomitant]
     Active Substance: TACROLIMUS
     Dosage: 3 CAO BID
     Route: 048
     Dates: start: 20180112
  25. SODIUM BICARBONATE. [Concomitant]
     Active Substance: SODIUM BICARBONATE
     Dosage: 2 DF, TID
     Route: 048
     Dates: start: 20180723
  26. SODIUM CHLORIDE. [Concomitant]
     Active Substance: SODIUM CHLORIDE
     Dosage: 0.9 %
     Route: 042
     Dates: start: 20190727
  27. EPINEPHRINE. [Concomitant]
     Active Substance: EPINEPHRINE
     Indication: ANAPHYLACTIC REACTION
     Dosage: 0.3 MG, PRN
     Route: 030
     Dates: start: 20180601
  28. VITAMIN D3 [Concomitant]
     Active Substance: CHOLECALCIFEROL
     Dosage: 1 CAPSULE, QD
     Route: 048
     Dates: start: 20180526
  29. CYCLOBENZAPRIN [Concomitant]
     Active Substance: CYCLOBENZAPRINE
     Dosage: 1 DF, TID
     Route: 048
     Dates: start: 20180525
  30. MIRALAX [Concomitant]
     Active Substance: POLYETHYLENE GLYCOL 3350
     Dosage: 1 SCOOP QD
     Route: 048
     Dates: start: 20170718
  31. PROCARDIA [Concomitant]
     Active Substance: NIFEDIPINE
     Dosage: UNK
  32. SODIUM BICARBONATE. [Concomitant]
     Active Substance: SODIUM BICARBONATE
     Dosage: 1 TAB QD
     Route: 048
     Dates: start: 20180112
  33. TACROLIMUS. [Concomitant]
     Active Substance: TACROLIMUS
     Dosage: 2 DF, BID
     Route: 048
     Dates: start: 20170729
  34. CALCITRIOL. [Concomitant]
     Active Substance: CALCITRIOL
     Dosage: 1 DF, QD
     Route: 048
     Dates: start: 20180723
  35. FABRAZYME [Suspect]
     Active Substance: AGALSIDASE BETA
     Indication: FABRY^S DISEASE
     Dosage: 65 MG, QOW
     Route: 041
     Dates: start: 20070323
  36. HEPARIN [Concomitant]
     Active Substance: HEPARIN SODIUM
     Indication: FLUSHING
     Dosage: 100 UN/ML
     Route: 042
     Dates: start: 20180601
  37. LIDOCAINE/PRILOCAINE [Concomitant]
     Active Substance: LIDOCAINE\PRILOCAINE
     Dosage: 2.5 %, PRN
     Route: 061
     Dates: start: 20190727
  38. MAGNESIUM [Concomitant]
     Active Substance: MAGNESIUM
     Dosage: 1 DF, QD
     Route: 048
     Dates: start: 20180526
  39. CYCLOBENZAPRIN [Concomitant]
     Active Substance: CYCLOBENZAPRINE
     Dosage: 1 TAB QD
     Route: 048
     Dates: start: 20190223
  40. PROGESTERONE. [Concomitant]
     Active Substance: PROGESTERONE
     Dosage: 200 MG, QD
     Route: 048
     Dates: start: 20180501

REACTIONS (7)
  - BK virus infection [Unknown]
  - Pain in extremity [Unknown]
  - Blood creatinine decreased [Not Recovered/Not Resolved]
  - Dyspepsia [Unknown]
  - Nausea [Unknown]
  - Vomiting [Unknown]
  - Dizziness [Not Recovered/Not Resolved]

NARRATIVE: CASE EVENT DATE: 20180725
